FAERS Safety Report 9721160 (Version 2)
Quarter: 2014Q1

REPORT INFORMATION
  Report Type: Spontaneous
  Country: US (occurrence: US)
  Receive Date: 20131129
  Receipt Date: 20140122
  Transmission Date: 20141002
  Serious: No
  Sender: FDA-Public Use
  Company Number: US-B.I. PHARMACEUTICALS,INC./RIDGEFIELD-2013-BI-38178BP

PATIENT
  Age: 55 Year
  Sex: Female
  Weight: 111 kg

DRUGS (12)
  1. SPIRIVA [Suspect]
     Indication: CHRONIC OBSTRUCTIVE PULMONARY DISEASE
     Dosage: 18 MCG
     Route: 055
     Dates: start: 2010
  2. SINGULAIR [Concomitant]
     Indication: ASTHMA
     Dosage: 10 MG
     Route: 048
  3. SINGULAIR [Concomitant]
     Indication: HYPERSENSITIVITY
  4. XANAX [Concomitant]
     Indication: ANXIETY
     Route: 048
     Dates: start: 2010
  5. POTASSIUM CHLORIDE [Concomitant]
     Route: 048
  6. PAXIL [Concomitant]
     Route: 048
  7. ADVAIR [Concomitant]
     Indication: ASTHMA
     Route: 055
  8. ADVAIR [Concomitant]
     Indication: CHRONIC OBSTRUCTIVE PULMONARY DISEASE
  9. HYDROCHLOROTHIAZIDE [Concomitant]
     Indication: HYPERTENSION
     Dosage: 12.5 MG
     Route: 048
  10. HYDROCHLOROTHIAZIDE [Concomitant]
     Indication: HYPERTENSION
  11. PREDNISONE [Concomitant]
     Route: 048
  12. LEVALBUTEROL [Concomitant]
     Indication: ASTHMA
     Dosage: LIQUID

REACTIONS (4)
  - Feeling cold [Not Recovered/Not Resolved]
  - Weight decreased [Not Recovered/Not Resolved]
  - Dyspnoea [Not Recovered/Not Resolved]
  - Upper respiratory tract infection [Recovered/Resolved]
